FAERS Safety Report 6761358-1 (Version None)
Quarter: 2010Q2

REPORT INFORMATION
  Report Type: 
  Country: None (occurrence: None)
  Receive Date: 20100608
  Receipt Date: 20100602
  Transmission Date: 20101027
  Serious: Yes (Death, Hospitalization)
  Sender: FDA-Public Use
  Company Number: US-GILEAD-2010-0029422

PATIENT
  Sex: Female
  Weight: 72.186 kg

DRUGS (17)
  1. LETAIRIS [Suspect]
     Indication: PULMONARY ARTERIAL HYPERTENSION
     Route: 048
     Dates: start: 20091109, end: 20100430
  2. REVATIO [Concomitant]
     Indication: PULMONARY HYPERTENSION
  3. CELLCEPT [Concomitant]
  4. PREDNISONE [Concomitant]
     Indication: SCLERODERMA
  5. CODEINE SUL TAB [Concomitant]
  6. HYDROCODONE [Concomitant]
  7. PLAQUENIL [Concomitant]
     Indication: SCLERODERMA
  8. ZANTAC [Concomitant]
  9. CALCIUM CARBONATE [Concomitant]
  10. MAGNESIUM [Concomitant]
  11. MULTI TAB FOR HER [Concomitant]
  12. ALBUTEROL [Concomitant]
     Indication: DYSPNOEA
  13. ALPRAZOLAM [Concomitant]
     Indication: ANXIETY
  14. FLEXERIL [Concomitant]
     Indication: PAIN
  15. CYTOXAN [Concomitant]
     Indication: SCLERODERMA
  16. BACTRIM [Concomitant]
     Indication: PROPHYLAXIS
  17. OS-CAL WITH D [Concomitant]
     Indication: PROPHYLAXIS

REACTIONS (1)
  - PULMONARY HYPERTENSION [None]
